FAERS Safety Report 6618770-0 (Version None)
Quarter: 2010Q1

REPORT INFORMATION
  Report Type: 
  Country: None (occurrence: None)
  Receive Date: 20100308
  Receipt Date: 20100226
  Transmission Date: 20100710
  Serious: Yes (Hospitalization)
  Sender: FDA-Public Use
  Company Number: US-BRISTOL-MYERS SQUIBB COMPANY-14995146

PATIENT
  Age: 50 Year
  Sex: Male
  Weight: 104 kg

DRUGS (3)
  1. TAXOL [Suspect]
     Indication: NON-SMALL CELL LUNG CANCER
     Dosage: 45MG/M2 IV
     Route: 042
     Dates: start: 20100104, end: 20100208
  2. CARBOPLATIN [Suspect]
     Indication: NON-SMALL CELL LUNG CANCER
     Dosage: AUC2IV WEEKLYX6
     Route: 042
     Dates: start: 20100104, end: 20100208
  3. RADIATION THERAPY [Suspect]
     Indication: NON-SMALL CELL LUNG CANCER
     Dosage: 1DF-60 GY NUMBER OF FRACTION 30.NUMBER OF ELAPSED DAYS:39
     Dates: start: 20100104, end: 20100212

REACTIONS (2)
  - DEEP VEIN THROMBOSIS [None]
  - PULMONARY EMBOLISM [None]
